FAERS Safety Report 17149912 (Version 1)
Quarter: 2019Q4

REPORT INFORMATION
  Report Type: Report from Study
  Country: US (occurrence: US)
  Receive Date: 20191213
  Receipt Date: 20191213
  Transmission Date: 20200122
  Serious: No
  Sender: FDA-Public Use
  Company Number: NVSC2019US027266

PATIENT
  Sex: Female

DRUGS (1)
  1. GLEEVEC [Suspect]
     Active Substance: IMATINIB MESYLATE
     Indication: PRODUCT USED FOR UNKNOWN INDICATION
     Dosage: 400 MG, QD
     Route: 048

REACTIONS (9)
  - Rash vesicular [Unknown]
  - Feeling abnormal [Unknown]
  - Pruritus [Unknown]
  - Abdominal discomfort [Unknown]
  - Pigmentation disorder [Unknown]
  - Pain in extremity [Unknown]
  - Alopecia [Unknown]
  - Discomfort [Unknown]
  - Taste disorder [Unknown]
